FAERS Safety Report 18754223 (Version 2)
Quarter: 2021Q1

REPORT INFORMATION
  Report Type: Spontaneous
  Country: JP (occurrence: JP)
  Receive Date: 20210119
  Receipt Date: 20210215
  Transmission Date: 20210419
  Serious: Yes (Other)
  Sender: FDA-Public Use
  Company Number: JP-TAKEDA-2021TJP000089

PATIENT
  Age: 25 Year
  Sex: Female

DRUGS (2)
  1. URSO [Concomitant]
     Active Substance: URSODIOL
     Dosage: UNK
     Route: 065
  2. ENTYVIO [Suspect]
     Active Substance: VEDOLIZUMAB
     Indication: COLITIS ULCERATIVE
     Dosage: 300 MILLIGRAM
     Route: 041
     Dates: start: 20200601

REACTIONS (3)
  - Ovarian cyst [Unknown]
  - Pregnancy [Unknown]
  - Ovarian haemorrhage [Unknown]

NARRATIVE: CASE EVENT DATE: 202010
